FAERS Safety Report 6849872-1 (Version None)
Quarter: 2010Q3

REPORT INFORMATION
  Report Type: 
  Country: None (occurrence: None)
  Receive Date: 20100716
  Receipt Date: 20071005
  Transmission Date: 20110219
  Serious: No
  Sender: FDA-Public Use
  Company Number: US-PFIZER INC-2007085613

PATIENT
  Sex: Female
  Weight: 69.5 kg

DRUGS (6)
  1. CHANTIX [Suspect]
     Indication: SMOKING CESSATION THERAPY
     Route: 048
     Dates: start: 20070701, end: 20070701
  2. VERAPAMIL [Concomitant]
  3. SYNTHROID [Concomitant]
  4. EFFEXOR [Concomitant]
  5. ALLEGRA D 24 HOUR [Concomitant]
  6. BENICAR [Concomitant]

REACTIONS (1)
  - NAUSEA [None]
